FAERS Safety Report 11435302 (Version 1)
Quarter: 2015Q3

REPORT INFORMATION
  Report Type: Spontaneous
  Country: JP (occurrence: JP)
  Receive Date: 20150831
  Receipt Date: 20150831
  Transmission Date: 20151125
  Serious: Yes (Other)
  Sender: FDA-Public Use
  Company Number: JP-009507513-1507JPN010797

PATIENT
  Age: 73 Year
  Sex: Female

DRUGS (1)
  1. FOSAMAC TABLETS 35MG [Suspect]
     Active Substance: ALENDRONATE SODIUM
     Indication: OSTEOPOROSIS
     Dosage: 17.5 MG, EVERY WEEK
     Route: 048

REACTIONS (9)
  - Underdose [Unknown]
  - Choking sensation [Unknown]
  - Wrong technique in product usage process [Unknown]
  - Scratch [Unknown]
  - Haemoptysis [Recovered/Resolved]
  - Dysphonia [Recovered/Resolved]
  - Pharyngeal erosion [Recovered/Resolved]
  - Pharyngeal haemorrhage [Recovered/Resolved]
  - Medication error [Unknown]

NARRATIVE: CASE EVENT DATE: 201507
